FAERS Safety Report 14926755 (Version 1)
Quarter: 2018Q2

REPORT INFORMATION
  Report Type: Spontaneous
  Country: US (occurrence: US)
  Receive Date: 20180523
  Receipt Date: 20180523
  Transmission Date: 20180711
  Serious: Yes (Other)
  Sender: FDA-Public Use
  Company Number: US-SCIEGEN PHARMACEUTICALS INC-2018SCISPO00298

PATIENT

DRUGS (1)
  1. BUPROPION HYDROCHLORIDE. [Suspect]
     Active Substance: BUPROPION HYDROCHLORIDE
     Indication: DEPRESSION
     Dosage: 150 MG (21 DAYS AGO)
     Route: 065

REACTIONS (5)
  - Suicidal behaviour [Unknown]
  - Drug ineffective [Unknown]
  - Hypersomnia [Unknown]
  - Mania [Unknown]
  - Family stress [Unknown]
